FAERS Safety Report 16377185 (Version 2)
Quarter: 2019Q2

REPORT INFORMATION
  Report Type: Spontaneous
  Country: LT (occurrence: LT)
  Receive Date: 20190531
  Receipt Date: 20190606
  Transmission Date: 20190711
  Serious: Yes (Hospitalization)
  Sender: FDA-Public Use
  Company Number: PHHY2019LT122890

PATIENT
  Age: 51 Year
  Sex: Female

DRUGS (9)
  1. LANTUS [Concomitant]
     Active Substance: INSULIN GLARGINE
     Indication: TYPE 1 DIABETES MELLITUS
     Dosage: 18 U/L, BID
     Route: 065
  2. OXACILLIN [Suspect]
     Active Substance: OXACILLIN SODIUM
     Indication: PAIN IN EXTREMITY
  3. METRONIDAZOLE. [Suspect]
     Active Substance: METRONIDAZOLE
     Indication: DIABETIC FOOT
     Dosage: 500 MG, QD
     Route: 048
  4. OXACILLIN [Suspect]
     Active Substance: OXACILLIN SODIUM
     Indication: STREPTOCOCCAL INFECTION
  5. METHYLPREDNISOLONE. [Concomitant]
     Active Substance: METHYLPREDNISOLONE
     Indication: RHEUMATOID ARTHRITIS
     Dosage: 4 MG, BID
     Route: 065
  6. OXACILLIN [Suspect]
     Active Substance: OXACILLIN SODIUM
     Indication: DIABETIC FOOT
     Dosage: 2 G, UNK
     Route: 042
  7. HUMALOG [Concomitant]
     Active Substance: INSULIN LISPRO
     Indication: TYPE 1 DIABETES MELLITUS
     Dosage: 12-12-12 U
     Route: 065
  8. METRONIDAZOLE. [Suspect]
     Active Substance: METRONIDAZOLE
     Indication: PAIN IN EXTREMITY
  9. METRONIDAZOLE. [Suspect]
     Active Substance: METRONIDAZOLE
     Indication: STREPTOCOCCAL INFECTION

REACTIONS (7)
  - Peripheral swelling [Recovering/Resolving]
  - Diabetic foot [Recovering/Resolving]
  - Disease recurrence [Recovering/Resolving]
  - Skin ulcer [Recovering/Resolving]
  - Erythema [Recovering/Resolving]
  - Product use in unapproved indication [Unknown]
  - Paraesthesia [Recovering/Resolving]
